FAERS Safety Report 5012097-9 (Version None)
Quarter: 2006Q2

REPORT INFORMATION
  Report Type: 
  Country: None (occurrence: None)
  Receive Date: 20060524
  Receipt Date: 20060511
  Transmission Date: 20061013
  Serious: Yes (Hospitalization)
  Sender: FDA-Public Use
  Company Number: 2006064034

PATIENT
  Sex: Male

DRUGS (5)
  1. SUTENT [Suspect]
     Indication: GASTROINTESTINAL STROMAL TUMOUR
     Dosage: ORAL
     Route: 048
  2. ACETAMINOPHEN [Concomitant]
  3. OPIOIDS [Concomitant]
  4. MORPHINE [Concomitant]
  5. ANALGESICS [Concomitant]

REACTIONS (5)
  - BLISTER [None]
  - CHEST PAIN [None]
  - DRUG INEFFECTIVE [None]
  - LARGE INTESTINE PERFORATION [None]
  - PAIN [None]
